FAERS Safety Report 6040365-0 (Version None)
Quarter: 2009Q1

REPORT INFORMATION
  Report Type: 
  Country: None (occurrence: None)
  Receive Date: 20090116
  Receipt Date: 20080227
  Transmission Date: 20090719
  Serious: No
  Sender: FDA-Public Use
  Company Number: US-BRISTOL-MYERS SQUIBB COMPANY-14093074

PATIENT
  Age: 33 Year
  Sex: Female
  Weight: 91 kg

DRUGS (3)
  1. ABILIFY [Suspect]
  2. BENZTROPINE [Concomitant]
  3. LEXAPRO [Concomitant]

REACTIONS (4)
  - DYSSTASIA [None]
  - MUSCULOSKELETAL STIFFNESS [None]
  - PELVIC PAIN [None]
  - WEIGHT INCREASED [None]
